FAERS Safety Report 10382241 (Version 2)
Quarter: 2014Q4

REPORT INFORMATION
  Report Type: Spontaneous
  Country: IT (occurrence: IT)
  Receive Date: 20140813
  Receipt Date: 20141204
  Transmission Date: 20150528
  Serious: Yes (Death, Other)
  Sender: FDA-Public Use
  Company Number: IT-SA-2014SA107459

PATIENT
  Age: 66 Year
  Sex: Male
  Weight: 85 kg

DRUGS (7)
  1. DEXAMETHASONE PHOSPHATE [Concomitant]
     Active Substance: DEXAMETHASONE PHOSPHATE
     Indication: ANTIINFLAMMATORY THERAPY
     Route: 042
     Dates: start: 20140723, end: 20140723
  2. OXALIPLATIN. [Suspect]
     Active Substance: OXALIPLATIN
     Indication: HYPERTENSION
     Route: 042
     Dates: start: 20140723, end: 20140723
  3. OXALIPLATIN. [Suspect]
     Active Substance: OXALIPLATIN
     Indication: COLON CANCER
     Route: 042
     Dates: start: 20140723, end: 20140723
  4. FOLINIC ACID [Concomitant]
     Active Substance: LEUCOVORIN
     Dates: start: 20140723, end: 20140723
  5. FLUOROURACIL. [Concomitant]
     Active Substance: FLUOROURACIL
     Dates: start: 20140723, end: 20140723
  6. ALOXI [Concomitant]
     Active Substance: PALONOSETRON HYDROCHLORIDE
     Indication: NAUSEA
     Dosage: FORM:INJECTABLE SOLUTION
     Route: 042
     Dates: start: 20140723, end: 20140723
  7. RANITIDINE [Concomitant]
     Active Substance: RANITIDINE\RANITIDINE HYDROCHLORIDE
     Route: 042
     Dates: start: 20140723, end: 20140723

REACTIONS (3)
  - Circulatory collapse [Fatal]
  - Fall [Unknown]
  - Ventricular fibrillation [Fatal]

NARRATIVE: CASE EVENT DATE: 20140723
